FAERS Safety Report 20991332 (Version 1)
Quarter: 2022Q2

REPORT INFORMATION
  Report Type: Spontaneous
  Country: GB (occurrence: GB)
  Receive Date: 20220622
  Receipt Date: 20220622
  Transmission Date: 20220721
  Serious: Yes (Hospitalization, Other)
  Sender: FDA-Public Use
  Company Number: GB-MHRA-MED-202206112251209910-HBNCW

PATIENT
  Sex: Female

DRUGS (2)
  1. METRONIDAZOLE [Suspect]
     Active Substance: METRONIDAZOLE
     Indication: Adverse drug reaction
     Dosage: UNK
     Route: 065
     Dates: start: 20220503
  2. BENZYDAMINE [Suspect]
     Active Substance: BENZYDAMINE
     Indication: Adverse drug reaction
     Dosage: UNK (AS REQUIRED)
     Route: 065
     Dates: start: 20220503

REACTIONS (1)
  - Conversion disorder [Unknown]
